FAERS Safety Report 6084517-2 (Version None)
Quarter: 2009Q1

REPORT INFORMATION
  Report Type: 
  Country: None (occurrence: None)
  Receive Date: 20090219
  Receipt Date: 20090211
  Transmission Date: 20090719
  Serious: Yes (Hospitalization)
  Sender: FDA-Public Use
  Company Number: US-SANOFI-SYNTHELABO-A03200900651

PATIENT
  Age: 51 Year
  Sex: Female

DRUGS (1)
  1. PLAVIX [Suspect]
     Indication: CEREBROVASCULAR ACCIDENT
     Route: 048
     Dates: start: 20080301

REACTIONS (4)
  - ABDOMINAL PAIN UPPER [None]
  - ASTHENIA [None]
  - COMA [None]
  - LOSS OF CONSCIOUSNESS [None]
